FAERS Safety Report 10635611 (Version 3)
Quarter: 2014Q4

REPORT INFORMATION
  Report Type: Spontaneous
  Country: JP (occurrence: JP)
  Receive Date: 20141205
  Receipt Date: 20141231
  Transmission Date: 20150529
  Serious: Yes (Hospitalization, Other)
  Sender: FDA-Public Use
  Company Number: JP-ALLERGAN-1424622US

PATIENT
  Age: 86 Year
  Sex: Female

DRUGS (4)
  1. NEODOPASTON [Concomitant]
     Active Substance: CARBIDOPA\LEVODOPA
  2. LIORESAL [Concomitant]
     Active Substance: BACLOFEN
     Dosage: UNK
     Dates: end: 20141117
  3. RIVOTRIL [Concomitant]
     Active Substance: CLONAZEPAM
  4. BOTOX [Suspect]
     Active Substance: ONABOTULINUMTOXINA
     Indication: MUSCLE SPASMS
     Dosage: 150 UNITS, SINGLE
     Route: 030
     Dates: start: 20141029, end: 20141029

REACTIONS (5)
  - Hypotonia [Not Recovered/Not Resolved]
  - Gait disturbance [Not Recovered/Not Resolved]
  - Eyelid ptosis [Unknown]
  - Muscular weakness [Not Recovered/Not Resolved]
  - Subdural haematoma [Unknown]

NARRATIVE: CASE EVENT DATE: 20141117
